FAERS Safety Report 23745806 (Version 2)
Quarter: 2024Q2

REPORT INFORMATION
  Report Type: Spontaneous
  Country: JP (occurrence: JP)
  Receive Date: 20240416
  Receipt Date: 20240503
  Transmission Date: 20240716
  Serious: Yes (Other)
  Sender: FDA-Public Use
  Company Number: JP-JNJFOC-20240438264

PATIENT
  Age: 8 Decade
  Sex: Female

DRUGS (2)
  1. OPSUMIT [Suspect]
     Active Substance: MACITENTAN
     Indication: Portopulmonary hypertension
     Route: 048
     Dates: start: 20240319, end: 20240415
  2. OXYGEN [Concomitant]
     Active Substance: OXYGEN
     Indication: Portopulmonary hypertension
     Dosage: DOSE UNKNOWN
     Route: 065
     Dates: start: 202404

REACTIONS (1)
  - Pericardial effusion [Not Recovered/Not Resolved]

NARRATIVE: CASE EVENT DATE: 20240401
